FAERS Safety Report 14706273 (Version 1)
Quarter: 2018Q2

REPORT INFORMATION
  Report Type: Spontaneous
  Country: US (occurrence: US)
  Receive Date: 20180402
  Receipt Date: 20180402
  Transmission Date: 20180711
  Serious: No
  Sender: FDA-Public Use
  Company Number: US-AKRON, INC.-2044948

PATIENT
  Sex: Male

DRUGS (1)
  1. HYDROCODONE BITARTRATE AND HOMATROPINE METHYLBROMIDE SYRUP [Suspect]
     Active Substance: HOMATROPINE METHYLBROMIDE\HYDROCODONE BITARTRATE
     Route: 048

REACTIONS (1)
  - Drug ineffective [Unknown]
